FAERS Safety Report 8152879-8 (Version None)
Quarter: 2012Q1

REPORT INFORMATION
  Report Type: 
  Country: None (occurrence: None)
  Receive Date: 20120216
  Receipt Date: 20120216
  Transmission Date: 20120608
  Serious: No
  Sender: FDA-Public Use
  Company Number: None

PATIENT
  Age: 44 Year
  Sex: Female

DRUGS (1)
  1. CVS COMPLETE CARE ANTI CAVITY MOUTHWASH [Suspect]
     Dates: start: 20111025, end: 20111109

REACTIONS (2)
  - HEADACHE [None]
  - DISTURBANCE IN ATTENTION [None]
